FAERS Safety Report 6688127-5 (Version None)
Quarter: 2010Q2

REPORT INFORMATION
  Report Type: 
  Country: None (occurrence: None)
  Receive Date: 20100420
  Receipt Date: 20100409
  Transmission Date: 20101027
  Serious: Yes (Other)
  Sender: FDA-Public Use
  Company Number: US-PFIZER INC-2010032333

PATIENT
  Sex: Female
  Weight: 71 kg

DRUGS (9)
  1. CHANTIX [Suspect]
     Indication: SMOKING CESSATION THERAPY
     Dosage: 1 MG, 2X/DAY
     Dates: start: 20091201
  2. GLIMEPIRIDE [Concomitant]
     Dosage: 4 MG, 2X/DAY
  3. METFORMIN HYDROCHLORIDE [Concomitant]
     Dosage: 1000 MG, UNK
  4. RANITIDINE [Concomitant]
     Dosage: 300 MG, 2X/DAY
  5. CYMBALTA [Concomitant]
     Indication: DEPRESSION
     Dosage: 30 MG, 1X/DAY
  6. ACETYLSALICYLIC ACID [Concomitant]
     Dosage: 81 MG, 1X/DAY
  7. LISINOPRIL AND HYDROCHLOROTHIAZIDE [Concomitant]
     Dosage: [LISINOPRIL 20MG]/[HYDROCHLOROTHIAZIDE 12.5MG]
  8. TYLENOL (CAPLET) [Concomitant]
     Dosage: UNK
  9. OS-CAL D [Concomitant]
     Dosage: FREQUENCY: 2X/DAY,

REACTIONS (12)
  - APATHY [None]
  - ASTHENIA [None]
  - ASTHENOPIA [None]
  - CHRONIC OBSTRUCTIVE PULMONARY DISEASE [None]
  - DECREASED APPETITE [None]
  - DIABETES MELLITUS [None]
  - FATIGUE [None]
  - HYPERLIPIDAEMIA [None]
  - HYPERSOMNIA [None]
  - HYPERTENSION [None]
  - VISION BLURRED [None]
  - WEIGHT DECREASED [None]
